FAERS Safety Report 20715068 (Version 2)
Quarter: 2022Q2

REPORT INFORMATION
  Report Type: Report from Study
  Country: EG (occurrence: EG)
  Receive Date: 20220415
  Receipt Date: 20220421
  Transmission Date: 20220721
  Serious: Yes (Other)
  Sender: FDA-Public Use
  Company Number: EG-NOVARTISPH-NVSC2022EG083813

PATIENT
  Sex: Male

DRUGS (6)
  1. GILENYA [Suspect]
     Active Substance: FINGOLIMOD HYDROCHLORIDE
     Indication: Multiple sclerosis
     Dosage: 0.5 MG, QD
     Route: 048
     Dates: start: 2017
  2. CALCIUM [Concomitant]
     Active Substance: CALCIUM
     Indication: Vitamin supplementation
     Dosage: UNK, BID
     Route: 065
     Dates: start: 2017
  3. VITAMIN D NOS [Concomitant]
     Active Substance: VITAMIN D NOS
     Indication: Vitamin D deficiency
     Dosage: UNK, QMO
     Route: 030
     Dates: start: 2017, end: 2018
  4. VIDROP [Concomitant]
     Indication: Vitamin D deficiency
     Dosage: UNK, QW, (ONE BOTTLE)
     Route: 065
     Dates: start: 2017
  5. ZINC [Concomitant]
     Active Substance: ZINC
     Indication: Vitamin supplementation
     Dosage: UNK, QD
     Route: 065
     Dates: start: 2017
  6. VITAMINS [Concomitant]
     Active Substance: VITAMINS
     Indication: Fatigue
     Dosage: UNK, QD
     Route: 065
     Dates: start: 2017

REACTIONS (8)
  - Multiple sclerosis relapse [Recovered/Resolved]
  - Secondary progressive multiple sclerosis [Recovered/Resolved]
  - Hemiparesis [Recovered/Resolved]
  - White blood cell count decreased [Not Recovered/Not Resolved]
  - Balance disorder [Recovered/Resolved]
  - Stress [Not Recovered/Not Resolved]
  - Arrhythmia [Recovering/Resolving]
  - COVID-19 [Recovering/Resolving]

NARRATIVE: CASE EVENT DATE: 20170101
